FAERS Safety Report 9480654 (Version 1)
Quarter: 2013Q3

REPORT INFORMATION
  Report Type: Spontaneous
  Country: US (occurrence: US)
  Receive Date: 20130828
  Receipt Date: 20130828
  Transmission Date: 20140515
  Serious: Yes (Hospitalization, Other)
  Sender: FDA-Public Use
  Company Number: US-AMGEN-KDL112439

PATIENT
  Age: 61 Year
  Sex: Female

DRUGS (1)
  1. ENBREL [Suspect]
     Indication: RHEUMATOID ARTHRITIS
     Dosage: UNK UNK, QD
     Route: 058
     Dates: start: 20000101

REACTIONS (4)
  - Crohn^s disease [Unknown]
  - Urinary tract infection [Unknown]
  - Bacteraemia [Unknown]
  - Rhinitis [Recovered/Resolved]
